FAERS Safety Report 7048143-0 (Version None)
Quarter: 2010Q4

REPORT INFORMATION
  Report Type: 
  Country: None (occurrence: None)
  Receive Date: 20101015
  Receipt Date: 20101006
  Transmission Date: 20110411
  Serious: Yes (Hospitalization)
  Sender: FDA-Public Use
  Company Number: US-ABBOTT-10P-163-0676637-00

PATIENT
  Sex: Male
  Weight: 72.64 kg

DRUGS (3)
  1. DEPAKOTE [Suspect]
     Indication: CONVULSION
     Dates: start: 20100505, end: 20100518
  2. MULTIPLE VITAMINS [Concomitant]
     Indication: VITAMIN SUPPLEMENTATION
  3. GABAPENTIN [Concomitant]
     Indication: CONVULSION

REACTIONS (9)
  - ABASIA [None]
  - APALLIC SYNDROME [None]
  - APHASIA [None]
  - BALANCE DISORDER [None]
  - EYE DISORDER [None]
  - HYPOPHAGIA [None]
  - ILL-DEFINED DISORDER [None]
  - MOTOR DYSFUNCTION [None]
  - WEIGHT DECREASED [None]
